FAERS Safety Report 15882884 (Version 1)
Quarter: 2019Q1

REPORT INFORMATION
  Report Type: Spontaneous
  Country: US (occurrence: US)
  Receive Date: 20190129
  Receipt Date: 20190129
  Transmission Date: 20190417
  Serious: Yes (Other)
  Sender: FDA-Public Use
  Company Number: US-EMD SERONO-9063868

PATIENT
  Sex: Female

DRUGS (1)
  1. REBIF [Suspect]
     Active Substance: INTERFERON BETA-1A
     Indication: PRODUCT USED FOR UNKNOWN INDICATION

REACTIONS (3)
  - Normal newborn [Recovered/Resolved]
  - Prolonged labour [Recovered/Resolved]
  - Paternal exposure timing unspecified [Recovered/Resolved]

NARRATIVE: CASE EVENT DATE: 201711
